FAERS Safety Report 23917279 (Version 2)
Quarter: 2024Q2

REPORT INFORMATION
  Report Type: Spontaneous
  Country: US (occurrence: US)
  Receive Date: 20240529
  Receipt Date: 20240613
  Transmission Date: 20240715
  Serious: No
  Sender: FDA-Public Use
  Company Number: US-Blueprint Medicines Corporation-3701

PATIENT
  Age: 69 Year
  Sex: Female

DRUGS (3)
  1. AYVAKIT [Suspect]
     Active Substance: AVAPRITINIB
     Indication: Systemic mastocytosis
     Route: 065
     Dates: start: 20240501
  2. ONDANSETRON [Suspect]
     Active Substance: ONDANSETRON
     Indication: Product used for unknown indication
     Route: 065
  3. REMERON [Suspect]
     Active Substance: MIRTAZAPINE
     Indication: Product used for unknown indication
     Route: 065

REACTIONS (6)
  - Anaemia [Unknown]
  - Pruritus [Unknown]
  - Platelet count decreased [Unknown]
  - Hunger [Unknown]
  - Gastrointestinal sounds abnormal [Unknown]
  - Constipation [Unknown]

NARRATIVE: CASE EVENT DATE: 20240604
